FAERS Safety Report 9147308 (Version 6)
Quarter: 2014Q1

REPORT INFORMATION
  Report Type: Report from Study
  Country: FR (occurrence: FR)
  Receive Date: 20130307
  Receipt Date: 20140210
  Transmission Date: 20141002
  Serious: Yes (Hospitalization, Other)
  Sender: FDA-Public Use
  Company Number: FR-ROCHE-1198128

PATIENT
  Age: 65 Year
  Sex: Female
  Weight: 56 kg

DRUGS (6)
  1. TRASTUZUMAB EMTANSINE [Suspect]
     Indication: BREAST CANCER
     Dosage: LAST DOSE PRIOR TO SAE: 20/FEB/2013
     Route: 042
     Dates: start: 20121107
  2. DOCETAXEL [Suspect]
     Indication: BREAST CANCER
     Dosage: DATE OF LAST DOSE PRIOR TO SAE: 20/FEB/2013
     Route: 042
     Dates: start: 20121107
  3. FILGRASTIM [Suspect]
     Indication: PRODUCT USED FOR UNKNOWN INDICATION
     Route: 065
  4. CALCIPRAT [Concomitant]
  5. UVEDOSE [Concomitant]
  6. VENTOLINE [Concomitant]
     Route: 065

REACTIONS (2)
  - Mucosal inflammation [Recovered/Resolved]
  - Melanoderma [Recovered/Resolved]
